FAERS Safety Report 9408783 (Version 1)
Quarter: 2013Q3

REPORT INFORMATION
  Report Type: Report from Study
  Country: CH (occurrence: CH)
  Receive Date: 20130719
  Receipt Date: 20130719
  Transmission Date: 20140515
  Serious: Yes (Hospitalization)
  Sender: FDA-Public Use
  Company Number: CH-ROCHE-1250428

PATIENT
  Age: 56 Year
  Sex: Male

DRUGS (2)
  1. BEVACIZUMAB [Suspect]
     Indication: BRONCHIAL CARCINOMA
     Dosage: LAST DOSE PRIOR TO EVENT:25/OCT/2012
     Route: 042
     Dates: start: 20101124
  2. PEMETREXED [Suspect]
     Indication: BRONCHIAL CARCINOMA
     Dosage: LAST DOSE PRIOR TO EVENT:15/NOV/2012
     Route: 042
     Dates: start: 20101124

REACTIONS (1)
  - Anaemia [Recovered/Resolved]
